FAERS Safety Report 4803588-1 (Version None)
Quarter: 2005Q4

REPORT INFORMATION
  Report Type: 
  Country: None (occurrence: None)
  Receive Date: 20051013
  Receipt Date: 20051004
  Transmission Date: 20060501
  Serious: Yes (Life-Threatening, Hospitalization)
  Sender: FDA-Public Use
  Company Number: 430042M05USA

PATIENT
  Age: 55 Year
  Sex: Female
  Weight: 95.2554 kg

DRUGS (7)
  1. NOVANTRONE [Suspect]
     Indication: MULTIPLE SCLEROSIS
     Dosage: 12 MG/M2, 1 IN 3 MONTHS, NOT REPORTED
     Dates: start: 20020725, end: 20030609
  2. AVONEX [Concomitant]
  3. BACLOFEN [Concomitant]
  4. COPAXONE [Concomitant]
  5. NEURONTIN [Concomitant]
  6. AMANTADINE [Concomitant]
  7. DETROL [Concomitant]

REACTIONS (1)
  - ACUTE MYELOID LEUKAEMIA [None]
